FAERS Safety Report 11301050 (Version 1)
Quarter: 2015Q3

REPORT INFORMATION
  Report Type: Spontaneous
  Country: US (occurrence: US)
  Receive Date: 20150722
  Receipt Date: 20150722
  Transmission Date: 20151125
  Serious: Yes (Life-Threatening, Other)
  Sender: FDA-Public Use
  Company Number: US-ELI_LILLY_AND_COMPANY-US201406002919

PATIENT
  Age: 35 Year
  Sex: Male
  Weight: 113.38 kg

DRUGS (4)
  1. METHAMPHETAMINE [Concomitant]
     Active Substance: METHAMPHETAMINE
  2. EFFIENT [Suspect]
     Active Substance: PRASUGREL HYDROCHLORIDE
     Indication: PERCUTANEOUS CORONARY INTERVENTION
     Dosage: UNK
     Route: 065
  3. ANGIOMAX [Concomitant]
     Active Substance: BIVALIRUDIN
  4. REOPRO [Concomitant]
     Active Substance: ABCIXIMAB
     Indication: ACUTE MYOCARDIAL INFARCTION
     Route: 065

REACTIONS (1)
  - Haemorrhage intracranial [Not Recovered/Not Resolved]
